FAERS Safety Report 20736026 (Version 5)
Quarter: 2025Q1

REPORT INFORMATION
  Report Type: Report from Study
  Country: US (occurrence: US)
  Receive Date: 20220421
  Receipt Date: 20250129
  Transmission Date: 20250409
  Serious: Yes (Hospitalization, Other)
  Sender: TAKEDA
  Company Number: US-TAKEDA-2022TUS026337

PATIENT
  Sex: Female

DRUGS (6)
  1. DEXLANSOPRAZOLE [Suspect]
     Active Substance: DEXLANSOPRAZOLE
     Indication: Product used for unknown indication
  2. DEXLANSOPRAZOLE [Suspect]
     Active Substance: DEXLANSOPRAZOLE
  3. OSENI [Suspect]
     Active Substance: ALOGLIPTIN BENZOATE\PIOGLITAZONE HYDROCHLORIDE
     Indication: Product used for unknown indication
  4. NESINA [Suspect]
     Active Substance: ALOGLIPTIN BENZOATE
     Indication: Diabetes mellitus
  5. JANUVIA [Concomitant]
     Active Substance: SITAGLIPTIN PHOSPHATE
  6. XARELTO [Concomitant]
     Active Substance: RIVAROXABAN

REACTIONS (7)
  - Cardiac disorder [Unknown]
  - Cerebrovascular accident [Unknown]
  - Myocardial infarction [Unknown]
  - Seizure [Unknown]
  - Intentional product use issue [Unknown]
  - Product use issue [Unknown]
  - Gastrointestinal disorder [Unknown]
